FAERS Safety Report 22640261 (Version 1)
Quarter: 2023Q2

REPORT INFORMATION
  Report Type: Spontaneous
  Country: AU (occurrence: AU)
  Receive Date: 20230626
  Receipt Date: 20230626
  Transmission Date: 20230721
  Serious: Yes (Life-Threatening, Hospitalization, Other)
  Sender: FDA-Public Use
  Company Number: AU-MLMSERVICE-20230609-4338617-1

PATIENT
  Age: 22 Year
  Sex: Female

DRUGS (14)
  1. MYCOPHENOLIC ACID [Suspect]
     Active Substance: MYCOPHENOLIC ACID
     Indication: Immunosuppressant drug therapy
     Dosage: IV/PO MYCOPHENOLATE 1500 MG BD
     Route: 042
     Dates: start: 2016
  2. TACROLIMUS [Suspect]
     Active Substance: TACROLIMUS
     Indication: Immunosuppressant drug therapy
     Dosage: TARGET TROUGH LEVELS OF 12-15 NG/ML
     Dates: start: 2016, end: 2016
  3. METHYLPREDNISOLONE [Suspect]
     Active Substance: METHYLPREDNISOLONE
     Indication: Immunosuppressant drug therapy
     Dates: start: 2016
  4. VORICONAZOLE [Concomitant]
     Active Substance: VORICONAZOLE
     Indication: Antibiotic therapy
     Dosage: 200 MG TWICE DAILY
     Dates: start: 2016
  5. AZITHROMYCIN [Concomitant]
     Active Substance: AZITHROMYCIN
     Indication: Bronchiolitis obliterans syndrome
     Dosage: 250 MG PO THREE TIME WEEKLY
     Route: 048
     Dates: start: 2016
  6. BACTRIM [Concomitant]
     Active Substance: SULFAMETHOXAZOLE\TRIMETHOPRIM
     Indication: Antifungal prophylaxis
     Route: 048
     Dates: start: 2016
  7. PIPERACILLIN AND TAZOBACTAM [Concomitant]
     Active Substance: PIPERACILLIN SODIUM\TAZOBACTAM SODIUM
     Indication: Evidence based treatment
     Dosage: 4.5 G EIGHT HOURLY
     Dates: start: 2016
  8. VANCOMYCIN [Concomitant]
     Active Substance: VANCOMYCIN
     Indication: Evidence based treatment
     Dates: start: 2016
  9. AMPHOTERICIN B [Concomitant]
     Active Substance: AMPHOTERICIN B
     Indication: Antifungal prophylaxis
     Dates: start: 2016
  10. VORICONAZOLE [Concomitant]
     Active Substance: VORICONAZOLE
     Indication: Evidence based treatment
     Dosage: 200 MG TWICE DAILY
     Dates: start: 2016
  11. MYCOPHENOLIC ACID [Suspect]
     Active Substance: MYCOPHENOLIC ACID
     Indication: Immunosuppressant drug therapy
     Dosage: IV/PO MYCOPHENOLATE 1500 MG BD
     Route: 048
     Dates: start: 2016
  12. PIPERACILLIN AND TAZOBACTAM [Concomitant]
     Active Substance: PIPERACILLIN SODIUM\TAZOBACTAM SODIUM
     Indication: Antibiotic therapy
     Dosage: 4.5 G EIGHT HOURLY
     Dates: start: 2016
  13. VANCOMYCIN [Concomitant]
     Active Substance: VANCOMYCIN
     Indication: Antibiotic therapy
     Dates: start: 2016
  14. AMPHOTERICIN B [Concomitant]
     Active Substance: AMPHOTERICIN B
     Indication: Anastomotic infection
     Dates: start: 2016

REACTIONS (11)
  - Ischaemia [Recovered/Resolved]
  - Hypoperfusion [Recovered/Resolved]
  - Upper airway necrosis [Recovered/Resolved]
  - Dehiscence [Recovered/Resolved]
  - Bronchial anastomosis complication [Recovered/Resolved]
  - Haemothorax [Recovered/Resolved]
  - Pneumomediastinum [Recovered/Resolved]
  - Hypotension [Recovered/Resolved]
  - Supraventricular tachycardia [Recovered/Resolved]
  - Traumatic haemothorax [Recovered/Resolved]
  - Immunosuppressant drug level increased [Unknown]

NARRATIVE: CASE EVENT DATE: 20160101
